FAERS Safety Report 19364756 (Version 4)
Quarter: 2021Q3

REPORT INFORMATION
  Report Type: Spontaneous
  Country: US (occurrence: US)
  Receive Date: 20210602
  Receipt Date: 20210810
  Transmission Date: 20211014
  Serious: No
  Sender: FDA-Public Use
  Company Number: US-EMD SERONO-9238914

PATIENT
  Age: 56 Year
  Sex: Female

DRUGS (1)
  1. REBIF [Suspect]
     Active Substance: INTERFERON BETA-1A
     Indication: MULTIPLE SCLEROSIS
     Dosage: REBIF PREFILLED SYRINGE
     Route: 058
     Dates: start: 20210330

REACTIONS (14)
  - Contusion [Unknown]
  - Rash maculo-papular [Unknown]
  - Chills [Unknown]
  - Device issue [Unknown]
  - Malaise [Unknown]
  - Injection site rash [Unknown]
  - Pyrexia [Unknown]
  - Insomnia [Unknown]
  - Pain [Unknown]
  - Vertigo [Unknown]
  - Headache [Unknown]
  - Injection site pain [Unknown]
  - Hypotension [Unknown]
  - Dizziness [Unknown]

NARRATIVE: CASE EVENT DATE: 2021
